FAERS Safety Report 9697227 (Version 2)
Quarter: 2014Q2

REPORT INFORMATION
  Report Type: Report from Study
  Country: BR (occurrence: BR)
  Receive Date: 20131120
  Receipt Date: 20140527
  Transmission Date: 20141212
  Serious: Yes (Disabling, Other)
  Sender: FDA-Public Use
  Company Number: BR-ROCHE-1306733

PATIENT
  Sex: Female
  Weight: 65 kg

DRUGS (1)
  1. MABTHERA [Suspect]
     Indication: RHEUMATOID ARTHRITIS
     Dosage: LATEST INFUSION ADMINISTERED ON 18/OCT/2011
     Route: 065
     Dates: start: 20090801

REACTIONS (3)
  - Limb deformity [Not Recovered/Not Resolved]
  - Fall [Unknown]
  - Pyrexia [Not Recovered/Not Resolved]
